FAERS Safety Report 8466474-4 (Version None)
Quarter: 2012Q2

REPORT INFORMATION
  Report Type: 
  Country: None (occurrence: None)
  Receive Date: 20120626
  Receipt Date: 20120620
  Transmission Date: 20120825
  Serious: Yes (Other)
  Sender: FDA-Public Use
  Company Number: PHHY2012US053600

PATIENT
  Sex: Male

DRUGS (1)
  1. VALPROIC ACID [Suspect]
     Indication: PARTIAL SEIZURES
     Dosage: 250 MG, 4 TIMES DAILY
     Route: 048

REACTIONS (4)
  - SPERMATOZOA MORPHOLOGY ABNORMAL [None]
  - INFERTILITY [None]
  - SPERM CONCENTRATION DECREASED [None]
  - SPERMATOZOA PROGRESSIVE MOTILITY DECREASED [None]
